FAERS Safety Report 17159681 (Version 1)
Quarter: 2019Q4

REPORT INFORMATION
  Report Type: Spontaneous
  Country: NL (occurrence: NL)
  Receive Date: 20191216
  Receipt Date: 20191216
  Transmission Date: 20200122
  Serious: Yes (Other)
  Sender: FDA-Public Use
  Company Number: NL-FRESENIUS KABI-FK201913888

PATIENT
  Age: 78 Year
  Sex: Male

DRUGS (1)
  1. TRANEXAMIC ACID (MANUFACTURER UNKNOWN) [Suspect]
     Active Substance: TRANEXAMIC ACID
     Indication: PRODUCT USED FOR UNKNOWN INDICATION
     Dosage: UNKNOWN
     Route: 024

REACTIONS (5)
  - Hypertension [Unknown]
  - Myoclonus [Unknown]
  - Wrong product administered [Unknown]
  - Hypercapnia [Unknown]
  - Arrhythmia [Unknown]
